FAERS Safety Report 5787759-6 (Version None)
Quarter: 2008Q2

REPORT INFORMATION
  Report Type: 
  Country: None (occurrence: None)
  Receive Date: 20080624
  Receipt Date: 20080624
  Transmission Date: 20081010
  Serious: Yes (Life-Threatening)
  Sender: FDA-Public Use
  Company Number: None

PATIENT
  Age: 42 Year
  Sex: Male

DRUGS (2)
  1. BOTOX [Suspect]
     Indication: MECHANICAL VENTILATION
     Dosage: 100 UNIT ONCE OTHER
     Route: 050
     Dates: start: 20080124, end: 20080124
  2. BOTOX [Suspect]
     Indication: SALIVARY HYPERSECRETION
     Dosage: 100 UNIT ONCE OTHER
     Route: 050
     Dates: start: 20080124, end: 20080124

REACTIONS (2)
  - ATRIOVENTRICULAR BLOCK COMPLETE [None]
  - BRADYCARDIA [None]
